FAERS Safety Report 19812394 (Version 1)
Quarter: 2021Q3

REPORT INFORMATION
  Report Type: Spontaneous
  Country: US (occurrence: US)
  Receive Date: 20210909
  Receipt Date: 20210909
  Transmission Date: 20211014
  Serious: Yes (Other)
  Sender: FDA-Public Use
  Company Number: US-FARMAPROD-202107-1169

PATIENT
  Sex: Female
  Weight: 80.36 kg

DRUGS (15)
  1. PRIMIDONE. [Concomitant]
     Active Substance: PRIMIDONE
  2. CALCIUM [Concomitant]
     Active Substance: CALCIUM
     Dosage: 500(1250)
  3. MOXIFLOXACIN. [Concomitant]
     Active Substance: MOXIFLOXACIN
  4. VITAMIN D3 [Concomitant]
     Active Substance: CHOLECALCIFEROL
  5. REFRESH CLASSIC [Concomitant]
     Active Substance: POLYVINYL ALCOHOL\POVIDONE
  6. METAXALONE. [Concomitant]
     Active Substance: METAXALONE
  7. SYNTHROID [Concomitant]
     Active Substance: LEVOTHYROXINE SODIUM
  8. OXERVATE [Suspect]
     Active Substance: CENEGERMIN-BKBJ
     Indication: NEUROTROPHIC KERATOPATHY
     Route: 047
     Dates: start: 20210701, end: 20210827
  9. PROBIOTIC [Concomitant]
     Active Substance: PROBIOTICS NOS
  10. ATENOLOL. [Concomitant]
     Active Substance: ATENOLOL
  11. CINNAMON. [Concomitant]
     Active Substance: CINNAMON
  12. MAGNESIUM [Concomitant]
     Active Substance: MAGNESIUM
  13. BUSPIRONE HCL [Concomitant]
     Active Substance: BUSPIRONE HYDROCHLORIDE
  14. LOVASTATIN. [Concomitant]
     Active Substance: LOVASTATIN
  15. KRILL OIL [Concomitant]
     Active Substance: DIETARY SUPPLEMENT\KRILL OIL

REACTIONS (4)
  - Ear haemorrhage [Unknown]
  - Eye operation [Unknown]
  - Dry eye [Unknown]
  - Periorbital pain [Unknown]
